FAERS Safety Report 19708275 (Version 1)
Quarter: 2021Q3

REPORT INFORMATION
  Report Type: Spontaneous
  Country: US (occurrence: US)
  Receive Date: 20210817
  Receipt Date: 20210817
  Transmission Date: 20211014
  Serious: No
  Sender: FDA-Public Use
  Company Number: US-SA-2021SA266967

PATIENT
  Age: 48 Year
  Sex: Female

DRUGS (1)
  1. DUPIXENT [Suspect]
     Active Substance: DUPILUMAB
     Indication: DYSHIDROTIC ECZEMA
     Dosage: 300 MG, QOW
     Route: 058
     Dates: start: 202107

REACTIONS (4)
  - Abdominal discomfort [Not Recovered/Not Resolved]
  - Diarrhoea [Unknown]
  - Condition aggravated [Not Recovered/Not Resolved]
  - Nausea [Unknown]
